FAERS Safety Report 20518826 (Version 1)
Quarter: 2022Q1

REPORT INFORMATION
  Report Type: Spontaneous
  Country: US (occurrence: None)
  Receive Date: 20220224
  Receipt Date: 20220224
  Transmission Date: 20220423
  Serious: Yes (Disabling)
  Sender: FDA-Public Use
  Company Number: None

PATIENT
  Age: 64 Year
  Sex: Female
  Weight: 49.5 kg

DRUGS (6)
  1. MUCINEX DM MAXIMUM STRENGTH [Suspect]
     Active Substance: DEXTROMETHORPHAN HYDROBROMIDE\GUAIFENESIN
     Indication: Eustachian tube disorder
     Dosage: OTHER QUANTITY : 1 CAPSULE(S);?FREQUENCY : EVERY 12 HOURS;?
     Route: 048
     Dates: start: 20211228, end: 20220103
  2. RESTASIS [Concomitant]
     Active Substance: CYCLOSPORINE
  3. VITAMINS [Concomitant]
     Active Substance: VITAMINS
  4. VITAMINS [Concomitant]
     Active Substance: VITAMINS
  5. VITAMIN D [Concomitant]
     Active Substance: VITAMIN D NOS
  6. MELATONIN [Concomitant]
     Active Substance: MELATONIN

REACTIONS (3)
  - Toothache [None]
  - Insomnia [None]
  - Drug ineffective [None]

NARRATIVE: CASE EVENT DATE: 20220112
